FAERS Safety Report 25805682 (Version 1)
Quarter: 2025Q3

REPORT INFORMATION
  Report Type: Spontaneous
  Country: US (occurrence: US)
  Receive Date: 20250916
  Receipt Date: 20250916
  Transmission Date: 20251020
  Serious: Yes (Other)
  Sender: COOPERSURGICAL
  Company Number: US-COOPERSURGICAL, INC.-2025CPS006559

PATIENT
  Age: 23 Year
  Sex: Female
  Weight: 63.492 kg

DRUGS (2)
  1. PARAGARD T 380A [Suspect]
     Active Substance: COPPER
     Indication: Contraception
     Route: 015
     Dates: start: 20130327
  2. MISOPROSTOL [Suspect]
     Active Substance: MISOPROSTOL
     Indication: Uterine cervix dilation procedure
     Route: 067
     Dates: start: 20210602, end: 20210602

REACTIONS (22)
  - Surgery [Recovered/Resolved]
  - Device breakage [Recovered/Resolved]
  - Foreign body in reproductive tract [Recovered/Resolved]
  - Complication of device removal [Recovered/Resolved]
  - Embedded device [Recovered/Resolved]
  - Procedural pain [Recovered/Resolved]
  - Anxiety [Recovered/Resolved]
  - Device issue [Recovered/Resolved]
  - Procedural haemorrhage [Unknown]
  - Emotional distress [Unknown]
  - Discomfort [Unknown]
  - Muscle spasms [Recovering/Resolving]
  - Pelvic pain [Unknown]
  - Abdominal pain [Unknown]
  - Abnormal uterine bleeding [Unknown]
  - Heavy menstrual bleeding [Unknown]
  - Anaemia [Unknown]
  - Device dislocation [Recovered/Resolved]
  - Dysmenorrhoea [Unknown]
  - Pain [Unknown]
  - Menstruation irregular [Unknown]
  - Abdominal distension [Unknown]

NARRATIVE: CASE EVENT DATE: 20130401
